FAERS Safety Report 7961509-7 (Version None)
Quarter: 2011Q4

REPORT INFORMATION
  Report Type: 
  Country: None (occurrence: None)
  Receive Date: 20111207
  Receipt Date: 20111122
  Transmission Date: 20120403
  Serious: Yes (Hospitalization, Disabling)
  Sender: FDA-Public Use
  Company Number: HU-CELGENEUS-076-21880-11113236

PATIENT
  Sex: Female
  Weight: 60 kg

DRUGS (23)
  1. REVLIMID [Suspect]
     Indication: MULTIPLE MYELOMA
     Dosage: 25 MILLIGRAM
     Route: 048
     Dates: start: 20110720, end: 20110804
  2. CARFILZOMIB [Suspect]
     Dosage: 40.5 MILLIGRAM
     Route: 065
     Dates: start: 20110929, end: 20110930
  3. FRONTIN [Concomitant]
     Indication: ANXIETY
     Dosage: .25 MILLIGRAM
     Route: 048
     Dates: start: 20050101
  4. CARFILZOMIB [Suspect]
     Dosage: 40 MILLIGRAM
     Route: 065
     Dates: start: 20110806, end: 20110806
  5. DEXAMETHASONE [Suspect]
     Indication: MULTIPLE MYELOMA
     Route: 065
     Dates: start: 20110720, end: 20110728
  6. COVEREX [Concomitant]
     Indication: HYPERTENSION
     Dosage: 5 MILLIGRAM
     Route: 048
     Dates: start: 20020101
  7. REVLIMID [Suspect]
     Dosage: 15 MILLIGRAM
     Route: 048
     Dates: start: 20110915, end: 20111005
  8. DEXAMETHASONE [Suspect]
     Route: 065
     Dates: start: 20110915, end: 20111006
  9. DEXAMETHASONE [Suspect]
     Route: 065
     Dates: start: 20110805, end: 20110812
  10. NORVASC [Concomitant]
     Indication: HYPERTENSION
     Dosage: 5 MILLIGRAM
     Route: 048
     Dates: start: 20020101
  11. ZOMETA [Concomitant]
     Dosage: .1429 MILLIGRAM
     Route: 041
     Dates: start: 20110720
  12. ENOXAPARIN SODIUM [Concomitant]
     Indication: THROMBOSIS PROPHYLAXIS
     Dosage: .4 MILLILITER
     Route: 058
     Dates: start: 20110719
  13. LANSOPRAZOLE [Concomitant]
     Route: 048
     Dates: start: 20110719
  14. MONO MACK DEPO [Concomitant]
     Indication: HYPERTENSION
     Dosage: 50 MILLIGRAM
     Route: 048
     Dates: start: 20020101
  15. CARFILZOMIB [Suspect]
     Indication: MULTIPLE MYELOMA
     Dosage: 30 MILLIGRAM
     Route: 065
     Dates: start: 20110720, end: 20110728
  16. CARFILZOMIB [Suspect]
     Dosage: 40.5 MILLIGRAM
     Route: 065
     Dates: start: 20110728, end: 20110729
  17. CARFILZOMIB [Suspect]
     Route: 065
     Dates: start: 20110915, end: 20110923
  18. NITROGLYCERIN [Concomitant]
     Indication: HYPERTENSION
     Dosage: 5 MILLIGRAM
     Route: 062
     Dates: start: 20020101
  19. TELVIRAN [Concomitant]
     Indication: ANTIVIRAL PROPHYLAXIS
     Dosage: 400 MILLIGRAM
     Route: 048
     Dates: start: 20110719
  20. REVLIMID [Suspect]
     Dosage: 15 MILLIGRAM
     Route: 048
     Dates: start: 20110818, end: 20110907
  21. ARANESP [Concomitant]
     Indication: ANAEMIA
     Route: 058
     Dates: start: 20110929
  22. METOPROLOL SUCCINATE [Concomitant]
     Indication: HYPERTENSION
     Dosage: 50 MILLIGRAM
     Route: 048
     Dates: start: 20020101
  23. VENTER [Concomitant]
     Dosage: 3000 MILLIGRAM
     Route: 048
     Dates: start: 20110804

REACTIONS (2)
  - COLON CANCER [None]
  - CEREBROVASCULAR ACCIDENT [None]
